FAERS Safety Report 8030605-0 (Version None)
Quarter: 2012Q1

REPORT INFORMATION
  Report Type: 
  Country: None (occurrence: None)
  Receive Date: 20120109
  Receipt Date: 20120104
  Transmission Date: 20120608
  Serious: Yes (Other)
  Sender: FDA-Public Use
  Company Number: US-ABBOTT-11P-163-0836047-00

PATIENT
  Sex: Female
  Weight: 54.48 kg

DRUGS (6)
  1. OTC MED FOR LIVER [Concomitant]
     Indication: PRODUCT USED FOR UNKNOWN INDICATION
  2. CALCIUM ACETATE [Concomitant]
     Indication: BLOOD CALCIUM
     Route: 048
  3. SYNTHROID [Suspect]
     Indication: HYPOTHYROIDISM
     Route: 048
     Dates: start: 20060101, end: 20110301
  4. SYNTHROID [Suspect]
     Route: 048
     Dates: start: 20110301
  5. VICODIN [Suspect]
     Indication: PROCEDURAL PAIN
     Route: 048
     Dates: start: 20110531, end: 20110623
  6. PERCOCET [Concomitant]
     Indication: PAIN
     Dates: start: 20110620, end: 20110621

REACTIONS (10)
  - BACK PAIN [None]
  - MUSCULOSKELETAL PAIN [None]
  - RASH PAPULAR [None]
  - BONE DISORDER [None]
  - ANXIETY [None]
  - BLOOD ALKALINE PHOSPHATASE INCREASED [None]
  - DEPRESSION [None]
  - PRURITUS GENERALISED [None]
  - ANGER [None]
  - HEPATIC ENZYME INCREASED [None]
